FAERS Safety Report 7725172-2 (Version None)
Quarter: 2011Q3

REPORT INFORMATION
  Report Type: 
  Country: None (occurrence: None)
  Receive Date: 20110901
  Receipt Date: 20110826
  Transmission Date: 20111222
  Serious: Yes (Hospitalization, Disabling)
  Sender: FDA-Public Use
  Company Number: US-MERCK-1101USA03579

PATIENT
  Age: 53 Year
  Sex: Female
  Weight: 66 kg

DRUGS (10)
  1. VITAMIN D (UNSPECIFIED) [Concomitant]
     Route: 065
     Dates: start: 19950101
  2. CORTEF [Concomitant]
     Route: 065
     Dates: start: 19930101
  3. FOSAMAX [Suspect]
     Route: 065
     Dates: start: 19960801
  4. CENTRUM SILVER [Concomitant]
     Route: 065
     Dates: start: 19950101
  5. THERAGRAN TABLETS ADVANCED FORMULA [Concomitant]
     Route: 065
     Dates: start: 19950101
  6. VITAMIN E [Concomitant]
     Route: 065
     Dates: start: 19950101
  7. CALCIUM (UNSPECIFIED) AND VITAMIN D (UNSPECIFIED) [Concomitant]
     Route: 065
     Dates: start: 19950101
  8. FOSAMAX PLUS D [Suspect]
     Indication: OSTEOPOROSIS
     Route: 048
     Dates: start: 20050101, end: 20091027
  9. FOSAMAX [Suspect]
     Indication: OSTEOPOROSIS
     Route: 048
     Dates: start: 19960101, end: 20100601
  10. PREMARIN [Concomitant]
     Route: 065
     Dates: start: 19980101

REACTIONS (47)
  - HYPOTENSION [None]
  - ARTHRALGIA [None]
  - FATIGUE [None]
  - POLYDIPSIA [None]
  - JOINT STIFFNESS [None]
  - BRONCHITIS [None]
  - GASTROOESOPHAGEAL REFLUX DISEASE [None]
  - POLYURIA [None]
  - PAIN IN EXTREMITY [None]
  - WEIGHT INCREASED [None]
  - ABDOMINAL DISCOMFORT [None]
  - CONSTIPATION [None]
  - CHEST PAIN [None]
  - PYREXIA [None]
  - PRESYNCOPE [None]
  - HYPERTENSION [None]
  - HYPERLIPIDAEMIA [None]
  - FOOT FRACTURE [None]
  - CONJUNCTIVAL HAEMORRHAGE [None]
  - SPINAL OSTEOARTHRITIS [None]
  - FEMUR FRACTURE [None]
  - FOREARM FRACTURE [None]
  - SCOLIOSIS [None]
  - ARTHRITIS [None]
  - FASCIITIS [None]
  - FALL [None]
  - BACK PAIN [None]
  - JOINT SWELLING [None]
  - JOINT EFFUSION [None]
  - INNER EAR DISORDER [None]
  - MYALGIA [None]
  - LUMBAR SPINAL STENOSIS [None]
  - DRUG HYPERSENSITIVITY [None]
  - DRY SKIN [None]
  - CELLULITIS [None]
  - OVARIAN CYST [None]
  - INTERVERTEBRAL DISC DEGENERATION [None]
  - HEADACHE [None]
  - GROIN PAIN [None]
  - GASTRITIS [None]
  - THYROID DISORDER [None]
  - NOCTURIA [None]
  - MUSCLE SPASMS [None]
  - CHILLS [None]
  - NAUSEA [None]
  - HYPOKALAEMIA [None]
  - SINUS DISORDER [None]
